FAERS Safety Report 9652692 (Version 2)
Quarter: 2013Q4

REPORT INFORMATION
  Report Type: Spontaneous
  Country: IT (occurrence: IT)
  Receive Date: 20131029
  Receipt Date: 20131108
  Transmission Date: 20140711
  Serious: Yes (Hospitalization)
  Sender: FDA-Public Use
  Company Number: PHHY2013IT118631

PATIENT
  Sex: Female

DRUGS (6)
  1. DIAZEPAM [Suspect]
     Indication: INTENTIONAL SELF-INJURY
     Dosage: 20 ML, ONCE/SINGLE
     Route: 048
     Dates: start: 20130909, end: 20130909
  2. SEROQUEL [Suspect]
     Indication: INTENTIONAL SELF-INJURY
     Dosage: 9 DF, ONCE/SINGLE
     Route: 048
     Dates: start: 20130909, end: 20130909
  3. FELISON [Suspect]
     Indication: INTENTIONAL SELF-INJURY
     Dosage: 12 DF, ONCE/SINGLE
     Route: 048
     Dates: start: 20130909, end: 20130909
  4. TRITTICO [Concomitant]
  5. TOPAMAX [Concomitant]
  6. VENLAFAXINE [Concomitant]

REACTIONS (3)
  - Sopor [Recovered/Resolved]
  - Long QT syndrome [Recovered/Resolved]
  - Drug abuse [Recovered/Resolved]
